FAERS Safety Report 6057644-3 (Version None)
Quarter: 2009Q1

REPORT INFORMATION
  Report Type: 
  Country: None (occurrence: None)
  Receive Date: 20090129
  Receipt Date: 20090120
  Transmission Date: 20090719
  Serious: Yes (Hospitalization, Other)
  Sender: FDA-Public Use
  Company Number: US-ABBOTT-09P-163-0498860-00

PATIENT
  Sex: Female
  Weight: 78.542 kg

DRUGS (3)
  1. HUMIRA [Suspect]
     Indication: CROHN'S DISEASE
     Dates: start: 20070101
  2. ROWASA [Concomitant]
     Indication: CROHN'S DISEASE
  3. CANASA [Concomitant]
     Indication: CROHN'S DISEASE

REACTIONS (8)
  - ABDOMINAL PAIN [None]
  - CROHN'S DISEASE [None]
  - DIARRHOEA [None]
  - PROCTALGIA [None]
  - RECTAL PROLAPSE [None]
  - RECTAL ULCER [None]
  - URETHRAL DILATATION [None]
  - URINARY TRACT INFECTION [None]
